FAERS Safety Report 13356548 (Version 4)
Quarter: 2022Q1

REPORT INFORMATION
  Report Type: Spontaneous
  Country: ES (occurrence: ES)
  Receive Date: 20170321
  Receipt Date: 20220221
  Transmission Date: 20220424
  Serious: Yes (Hospitalization, Other)
  Sender: FDA-Public Use
  Company Number: ES-CELGENE-ESP-2017021713

PATIENT
  Age: 52 Year
  Sex: Female
  Weight: 67.3 kg

DRUGS (30)
  1. POMALIDOMIDE [Suspect]
     Active Substance: POMALIDOMIDE
     Indication: Plasma cell myeloma
     Dosage: 4 MILLIGRAM
     Route: 048
     Dates: start: 20170126
  2. POMALIDOMIDE [Suspect]
     Active Substance: POMALIDOMIDE
     Dosage: 3 MILLIGRAM
     Route: 048
     Dates: start: 20170323, end: 20170325
  3. NIVOLUMAB [Suspect]
     Active Substance: NIVOLUMAB
     Indication: Plasma cell myeloma
     Dosage: 240 MILLIGRAM
     Route: 041
     Dates: start: 20170126
  4. NIVOLUMAB [Suspect]
     Active Substance: NIVOLUMAB
     Dosage: 240 MILLIGRAM
     Route: 041
     Dates: start: 20170323, end: 20170325
  5. DEXAMETHASONE [Suspect]
     Active Substance: DEXAMETHASONE
     Indication: Plasma cell myeloma
     Dosage: 40 MILLIGRAM
     Route: 048
     Dates: start: 20170126
  6. DEXAMETHASONE [Suspect]
     Active Substance: DEXAMETHASONE
     Dosage: 40 MILLIGRAM
     Route: 048
     Dates: start: 20170323, end: 20170325
  7. NIMODIPINE [Concomitant]
     Active Substance: NIMODIPINE
     Indication: Product used for unknown indication
     Dosage: 60 MILLIGRAM
     Route: 065
     Dates: start: 2000
  8. hypercaloric nutrition [Concomitant]
     Indication: Product used for unknown indication
     Dosage: 200 MILLILITER
     Route: 065
     Dates: start: 20170209, end: 20170209
  9. RIVAROXABAN [Concomitant]
     Active Substance: RIVAROXABAN
     Indication: Product used for unknown indication
     Dosage: 20 MILLIGRAM
     Route: 065
     Dates: start: 201608
  10. COTRIMOXAZOLE [Concomitant]
     Active Substance: SULFAMETHOXAZOLE\TRIMETHOPRIM
     Indication: Product used for unknown indication
     Route: 065
     Dates: start: 201608
  11. METOCLOPRAMIDE [Concomitant]
     Active Substance: METOCLOPRAMIDE
     Indication: Product used for unknown indication
     Dosage: 30 MILLIGRAM
     Route: 065
     Dates: start: 20170123, end: 20170125
  12. ALLOPURINOL [Concomitant]
     Active Substance: ALLOPURINOL
     Indication: Product used for unknown indication
     Dosage: 300 MILLIGRAM
     Route: 065
     Dates: start: 20170125
  13. BEMIPARIN [Concomitant]
     Active Substance: BEMIPARIN
     Indication: Product used for unknown indication
     Dosage: 3500 IU (INTERNATIONAL UNIT)
     Route: 065
     Dates: start: 20170126, end: 20170130
  14. BEMIPARIN [Concomitant]
     Active Substance: BEMIPARIN
     Dosage: 3500 IU (INTERNATIONAL UNIT)
     Route: 065
     Dates: start: 20170130, end: 20170201
  15. BEMIPARIN [Concomitant]
     Active Substance: BEMIPARIN
     Dosage: 3500 IU (INTERNATIONAL UNIT)
     Route: 065
     Dates: start: 20170201, end: 20170203
  16. BEMIPARIN [Concomitant]
     Active Substance: BEMIPARIN
     Dosage: 3500 IU (INTERNATIONAL UNIT)
     Route: 065
     Dates: start: 20170204, end: 20170210
  17. PANTOPRAZOLE [Concomitant]
     Active Substance: PANTOPRAZOLE
     Indication: Product used for unknown indication
     Dosage: 40 MILLIGRAM
     Route: 065
     Dates: start: 20170127
  18. ZOLEDRONIC ACID [Concomitant]
     Active Substance: ZOLEDRONIC ACID
     Indication: Product used for unknown indication
     Dosage: 4 MILLIGRAM
     Route: 065
     Dates: start: 20170201
  19. OMEPRAZOLE [Concomitant]
     Active Substance: OMEPRAZOLE
     Indication: Product used for unknown indication
     Route: 065
     Dates: start: 2011
  20. GABAPENTIN [Concomitant]
     Active Substance: GABAPENTIN
     Indication: Product used for unknown indication
     Dosage: 300 MILLIGRAM
     Route: 065
     Dates: start: 20170113, end: 20170128
  21. NABUMETONA [Concomitant]
     Indication: Product used for unknown indication
     Dosage: 1 GRAM
     Route: 065
     Dates: start: 20170123
  22. DEXKETOPROFEN [Concomitant]
     Active Substance: DEXKETOPROFEN
     Indication: Product used for unknown indication
     Dosage: 1.5 MILLIGRAM
     Route: 065
     Dates: start: 20170123, end: 20170127
  23. DEXKETOPROFEN [Concomitant]
     Active Substance: DEXKETOPROFEN
     Dosage: 50 MILLIGRAM
     Route: 065
     Dates: start: 20170205, end: 20170205
  24. LACTULOSE [Concomitant]
     Active Substance: LACTULOSE
     Indication: Product used for unknown indication
     Dosage: 30 GRAM
     Route: 065
     Dates: start: 20170125, end: 20170203
  25. LORAZEPAM [Concomitant]
     Active Substance: LORAZEPAM
     Indication: Product used for unknown indication
     Dosage: 1 MILLIGRAM
     Route: 065
     Dates: start: 20170125
  26. red blood cells transfusion [Concomitant]
     Indication: Product used for unknown indication
     Dosage: 2 BAGS
     Route: 065
     Dates: start: 20170128, end: 20170128
  27. red blood cells transfusion [Concomitant]
     Dosage: 1 BAG
     Route: 065
     Dates: start: 20170203, end: 20170204
  28. red blood cells transfusion [Concomitant]
     Dosage: 1 BAG
     Route: 065
     Dates: start: 20170210, end: 20170211
  29. METAMIZOLE [Concomitant]
     Active Substance: METAMIZOLE
     Indication: Product used for unknown indication
     Route: 065
     Dates: start: 20170127
  30. GENTAMICIN [Concomitant]
     Active Substance: GENTAMICIN
     Indication: Product used for unknown indication
     Dosage: 4 DROPS
     Route: 065
     Dates: start: 20170201, end: 20170208

REACTIONS (4)
  - Alanine aminotransferase increased [Recovered/Resolved]
  - Febrile neutropenia [Recovered/Resolved]
  - Device related infection [Recovered/Resolved]
  - Blood creatinine increased [Recovered/Resolved]

NARRATIVE: CASE EVENT DATE: 20170203
